FAERS Safety Report 4568190-8 (Version None)
Quarter: 2005Q1

REPORT INFORMATION
  Report Type: 
  Country: None (occurrence: None)
  Receive Date: 20050202
  Receipt Date: 20050125
  Transmission Date: 20050727
  Serious: Yes (Life-Threatening, Hospitalization, Disabling)
  Sender: FDA-Public Use
  Company Number: US-MERCK-0501USA03908

PATIENT
  Age: 51 Year
  Sex: Female

DRUGS (7)
  1. VIOXX [Suspect]
     Indication: ARTHRITIS
     Route: 048
     Dates: start: 19991026, end: 20020901
  2. LASIX [Concomitant]
     Route: 065
  3. CLONIDINE [Concomitant]
     Route: 065
  4. COZAAR [Concomitant]
     Route: 048
  5. ZANTAC [Concomitant]
     Route: 065
  6. CLARITIN [Concomitant]
     Route: 065
  7. ELAVIL [Concomitant]
     Route: 048

REACTIONS (11)
  - ASTHMA [None]
  - CARDIAC DISORDER [None]
  - CARDIAC FAILURE CONGESTIVE [None]
  - DIARRHOEA [None]
  - DIZZINESS [None]
  - FATIGUE [None]
  - HAEMATOCHEZIA [None]
  - HAEMORRHAGE [None]
  - HYPERTENSION [None]
  - MOVEMENT DISORDER [None]
  - SWELLING FACE [None]
